FAERS Safety Report 4917301-0 (Version None)
Quarter: 2006Q1

REPORT INFORMATION
  Report Type: 
  Country: None (occurrence: None)
  Receive Date: 20060221
  Receipt Date: 20041004
  Transmission Date: 20060701
  Serious: Yes (Hospitalization)
  Sender: FDA-Public Use
  Company Number: US-MERCK-0412USA03172

PATIENT
  Age: 54 Year
  Sex: Male
  Weight: 181 kg

DRUGS (6)
  1. VIOXX [Suspect]
     Indication: NEURALGIA
     Route: 048
     Dates: start: 19991119
  2. VIOXX [Suspect]
     Route: 048
     Dates: start: 20000301, end: 20000501
  3. VIOXX [Suspect]
     Route: 048
     Dates: start: 20040624, end: 20040905
  4. VIOXX [Suspect]
     Indication: GOUT
     Route: 048
     Dates: start: 19991119
  5. VIOXX [Suspect]
     Route: 048
     Dates: start: 20000301, end: 20000501
  6. VIOXX [Suspect]
     Route: 048
     Dates: start: 20040624, end: 20040905

REACTIONS (14)
  - BUNDLE BRANCH BLOCK LEFT [None]
  - CHEST PAIN [None]
  - CORONARY ARTERY STENOSIS [None]
  - DEPRESSION [None]
  - DYSPNOEA [None]
  - ERUCTATION [None]
  - GASTROOESOPHAGEAL REFLUX DISEASE [None]
  - HEART INJURY [None]
  - HYPERLIPIDAEMIA [None]
  - INFECTION [None]
  - INJURY [None]
  - MYOCARDIAL INFARCTION [None]
  - VASCULAR GRAFT OCCLUSION [None]
  - VENTRICULAR HYPOKINESIA [None]
